FAERS Safety Report 10990454 (Version 1)
Quarter: 2015Q2

REPORT INFORMATION
  Report Type: Spontaneous
  Country: US (occurrence: US)
  Receive Date: 20150406
  Receipt Date: 20150406
  Transmission Date: 20150821
  Serious: Yes (Hospitalization)
  Sender: FDA-Public Use
  Company Number: US-PFIZER INC-2015111098

PATIENT
  Age: 30 Day
  Sex: Female
  Weight: 1.38 kg

DRUGS (3)
  1. PROPRANOLOL [Concomitant]
     Active Substance: PROPRANOLOL\PROPRANOLOL HYDROCHLORIDE
     Indication: CONGENITAL HYPERTHYROIDISM
     Dosage: 1.5 MG/KG/DAY IN 3 DIVIDED DOSES
  2. METHIMAZOLE. [Suspect]
     Active Substance: METHIMAZOLE
     Indication: CONGENITAL HYPERTHYROIDISM
     Dosage: 1 MG/KG/DAY IN 3 DIVIDED DOSED
  3. LUGOL [Concomitant]
     Active Substance: IODINE\POTASSIUM IODIDE
     Indication: CONGENITAL HYPERTHYROIDISM
     Dosage: 8 MG, EVERY 8 HOURS

REACTIONS (1)
  - Neutropenia [Recovering/Resolving]
